FAERS Safety Report 4874123-7 (Version None)
Quarter: 2006Q1

REPORT INFORMATION
  Report Type: 
  Country: None (occurrence: None)
  Receive Date: 20060104
  Receipt Date: 20051221
  Transmission Date: 20060701
  Serious: Yes (Other)
  Sender: FDA-Public Use
  Company Number: 2005172409

PATIENT
  Age: 31 Year
  Sex: Female
  Weight: 105 kg

DRUGS (3)
  1. ZYVOX [Suspect]
     Indication: STAPHYLOCOCCAL SEPSIS
     Dosage: 1200 MG (600 MG, EVERY 12 HOURS); INTRAVENOUS, 1800 MG (600 MG, EVERY 8 HOURS); INTRAVENOUS
     Route: 042
     Dates: start: 20051105
  2. ZYVOX [Suspect]
     Indication: STAPHYLOCOCCAL SEPSIS
     Dosage: 1200 MG (600 MG, EVERY 12 HOURS); INTRAVENOUS, 1800 MG (600 MG, EVERY 8 HOURS); INTRAVENOUS
     Route: 042
     Dates: start: 20051205
  3. RIFAMPICIN [Suspect]
     Indication: ILL-DEFINED DISORDER

REACTIONS (4)
  - DRUG INTERACTION [None]
  - DRUG LEVEL DECREASED [None]
  - PYREXIA [None]
  - THERAPY NON-RESPONDER [None]
